FAERS Safety Report 21869530 (Version 1)
Quarter: 2023Q1

REPORT INFORMATION
  Report Type: Spontaneous
  Country: PT (occurrence: PT)
  Receive Date: 20230117
  Receipt Date: 20230117
  Transmission Date: 20230418
  Serious: Yes (Hospitalization)
  Sender: FDA-Public Use
  Company Number: PT-AMNEAL PHARMACEUTICALS-2023-AMRX-00116

PATIENT
  Age: 66 Year
  Sex: Female

DRUGS (3)
  1. QUETIAPINE FUMARATE [Suspect]
     Active Substance: QUETIAPINE FUMARATE
     Indication: Major depression
     Route: 065
  2. ESCITALOPRAM [Suspect]
     Active Substance: ESCITALOPRAM OXALATE
     Indication: Major depression
     Route: 065
  3. OLANZAPINE [Suspect]
     Active Substance: OLANZAPINE
     Indication: Withdrawal syndrome
     Dosage: (5 MG/D)
     Route: 065

REACTIONS (4)
  - Catatonia [Recovering/Resolving]
  - Withdrawal syndrome [Recovering/Resolving]
  - Oedema peripheral [Recovering/Resolving]
  - Somnolence [Recovering/Resolving]
